FAERS Safety Report 6373316-X (Version None)
Quarter: 2009Q3

REPORT INFORMATION
  Report Type: 
  Country: None (occurrence: None)
  Receive Date: 20090924
  Receipt Date: 20090326
  Transmission Date: 20100115
  Serious: No
  Sender: FDA-Public Use
  Company Number: US-ASTRAZENECA-2009UW07826

PATIENT
  Age: 15 Year
  Sex: Male

DRUGS (2)
  1. SEROQUEL XR [Suspect]
     Route: 048
  2. TETRACYCLINE [Concomitant]

REACTIONS (3)
  - APRAXIA [None]
  - HEADACHE [None]
  - WEIGHT INCREASED [None]
